FAERS Safety Report 8501055-5 (Version None)
Quarter: 2012Q3

REPORT INFORMATION
  Report Type: 
  Country: None (occurrence: None)
  Receive Date: 20120710
  Receipt Date: 20120627
  Transmission Date: 20120928
  Serious: Yes (Hospitalization, Other)
  Sender: FDA-Public Use
  Company Number: CA-JNJFOC-20120614193

PATIENT
  Sex: Female
  Weight: 52.6 kg

DRUGS (3)
  1. REMICADE [Suspect]
     Indication: CROHN'S DISEASE
     Dosage: ONCE IN EVERY 6-8  WEEKS
     Route: 042
     Dates: start: 20040125
  2. REMICADE [Suspect]
     Dosage: ONCE IN EVERY 6-8  WEEKS
     Route: 042
     Dates: start: 20120627
  3. METHOTREXATE [Concomitant]
     Route: 065

REACTIONS (1)
  - ILEOSTOMY [None]
